FAERS Safety Report 7304107-0 (Version None)
Quarter: 2011Q1

REPORT INFORMATION
  Report Type: 
  Country: None (occurrence: None)
  Receive Date: 20110221
  Receipt Date: 20110217
  Transmission Date: 20110831
  Serious: Yes (Life-Threatening, Hospitalization)
  Sender: FDA-Public Use
  Company Number: PHHO2011BR03226

PATIENT
  Sex: Female
  Weight: 85.4 kg

DRUGS (5)
  1. ATENOLOL [Concomitant]
     Indication: HYPERTENSION
  2. ARADOIS [Concomitant]
     Indication: HYPERTENSION
  3. SIMVASTATIN [Concomitant]
     Indication: DYSLIPIDAEMIA
  4. COUMADIN [Suspect]
     Indication: PULMONARY EMBOLISM
     Dosage: 2.5 MG, QD
     Dates: start: 20101014
  5. GLEEVEC [Suspect]
     Indication: GASTROINTESTINAL STROMAL TUMOUR
     Dosage: 400 MG, UNK
     Route: 048
     Dates: start: 20101126, end: 20110131

REACTIONS (2)
  - CEREBROVASCULAR ACCIDENT [None]
  - SURGERY [None]
